FAERS Safety Report 10478273 (Version 1)
Quarter: 2014Q3

REPORT INFORMATION
  Report Type: Spontaneous
  Country: US (occurrence: US)
  Receive Date: 20140926
  Receipt Date: 20140926
  Transmission Date: 20150326
  Serious: No
  Sender: FDA-Public Use
  Company Number: US-009507513-1409USA012320

PATIENT
  Age: 66 Year
  Sex: Female

DRUGS (1)
  1. CLARITIN-D 24 HOUR [Suspect]
     Active Substance: LORATADINE\PSEUDOEPHEDRINE SULFATE
     Indication: HYPERSENSITIVITY
     Dosage: UNK, UNKNOWN
     Route: 048
     Dates: start: 2012

REACTIONS (8)
  - Nervousness [Unknown]
  - Irritability [Unknown]
  - Psychomotor hyperactivity [Unknown]
  - Influenza like illness [Unknown]
  - Agitation [Unknown]
  - Restlessness [Unknown]
  - Anxiety [Unknown]
  - Depression [Unknown]
